FAERS Safety Report 24268884 (Version 1)
Quarter: 2024Q3

REPORT INFORMATION
  Report Type: Spontaneous
  Country: US (occurrence: None)
  Receive Date: 20240829
  Receipt Date: 20240829
  Transmission Date: 20241017
  Serious: Yes (Life-Threatening, Hospitalization, Disabling)
  Sender: Public
  Company Number: None

PATIENT
  Age: 77 Year
  Sex: Female
  Weight: 72 kg

DRUGS (7)
  1. PROLIA [Suspect]
     Active Substance: DENOSUMAB
     Indication: Bone density decreased
     Dates: start: 20240821
  2. ATENOLOL [Concomitant]
     Active Substance: ATENOLOL
  3. DABIGATRAN [Concomitant]
     Active Substance: DABIGATRAN
  4. LEVOTHYROXINE [Concomitant]
     Active Substance: LEVOTHYROXINE\LEVOTHYROXINE SODIUM
  5. VITAMINS [Concomitant]
     Active Substance: VITAMINS
  6. Calcius [Concomitant]
  7. VITAMIN D3 [Concomitant]
     Active Substance: CHOLECALCIFEROL

REACTIONS (15)
  - Neck pain [None]
  - Chest pain [None]
  - Back pain [None]
  - Blood pressure increased [None]
  - Adverse drug reaction [None]
  - Arthropathy [None]
  - Hypoaesthesia [None]
  - Asthenia [None]
  - Gait inability [None]
  - Diplegia [None]
  - Fall [None]
  - Face injury [None]
  - Blood sodium decreased [None]
  - Blood potassium abnormal [None]
  - Product communication issue [None]

NARRATIVE: CASE EVENT DATE: 20240823
